FAERS Safety Report 9529360 (Version 1)
Quarter: 2013Q1

REPORT INFORMATION
  Report Type: Spontaneous
  Country: US (occurrence: None)
  Receive Date: 20130318
  Receipt Date: 20130318
  Transmission Date: 20140127
  Serious: Yes (Hospitalization)
  Sender: FDA-Public Use
  Company Number: 1211USA008051

PATIENT
  Age: 59 Year
  Sex: Female

DRUGS (8)
  1. PEGINTRON [Suspect]
     Route: 058
     Dates: start: 201204, end: 2012
  2. TELAPREVIR (TELAPREVIR) [Suspect]
  3. RIBASPHERE (RIBAVIRIN) [Suspect]
  4. METOPROLOL (METOPROLOL) [Concomitant]
  5. HYDROCHLOROTHIAZIDE (+) LISINOPRIL (HYDROCHLOROTHIAZIDE LISINOPRIL) [Concomitant]
  6. LEVOTHYROXINE SODIUM (LEVOTHYROXINE SODIUM) [Concomitant]
  7. ALBUTEROL (ALBUTEROL) [Concomitant]
  8. OMEGA-3 MARINE TRIGLYCERIDES (OMEGA-3 MARINE TRIGLYCERIDES) [Concomitant]

REACTIONS (6)
  - Hypertension [None]
  - Back pain [None]
  - Chest pain [None]
  - Dyspnoea [None]
  - Mood altered [None]
  - Fatigue [None]
